FAERS Safety Report 12839771 (Version 1)
Quarter: 2016Q4

REPORT INFORMATION
  Report Type: Spontaneous
  Country: US (occurrence: US)
  Receive Date: 20161011
  Receipt Date: 20161011
  Transmission Date: 20170207
  Serious: Yes (Disabling, Other)
  Sender: FDA-Public Use
  Company Number: None

PATIENT
  Age: 54 Year
  Weight: 110.25 kg

DRUGS (2)
  1. HARVONI [Suspect]
     Active Substance: LEDIPASVIR\SOFOSBUVIR
     Indication: HEPATITIS C
     Dosage: OTHER ORAL
     Route: 048
  2. ONE-A-DAY NOS [Concomitant]
     Active Substance: MINERALS\VITAMINS

REACTIONS (8)
  - Depression [None]
  - Vertigo [None]
  - Headache [None]
  - Dizziness [None]
  - Fall [None]
  - Suicidal ideation [None]
  - Anxiety [None]
  - Homicidal ideation [None]

NARRATIVE: CASE EVENT DATE: 20160816
